FAERS Safety Report 22239826 (Version 1)
Quarter: 2023Q2

REPORT INFORMATION
  Report Type: Spontaneous
  Country: US (occurrence: US)
  Receive Date: 20230421
  Receipt Date: 20230421
  Transmission Date: 20230722
  Serious: No
  Sender: FDA-Public Use
  Company Number: US-SA-SAC20230419001495

PATIENT
  Sex: Female

DRUGS (6)
  1. DUPIXENT [Suspect]
     Active Substance: DUPILUMAB
     Indication: Dermatitis atopic
     Dosage: 300 MG, QOW
     Route: 058
     Dates: start: 20201205
  2. AKLIEF [Concomitant]
     Active Substance: TRIFAROTENE
  3. CLOBETASOL [Concomitant]
     Active Substance: CLOBETASOL
  4. ALUMINUM CHLORIDE [Concomitant]
     Active Substance: ALUMINUM CHLORIDE
  5. FLUTICASONE [Concomitant]
     Active Substance: FLUTICASONE
  6. TARSUM [Concomitant]
     Active Substance: COAL TAR\SALICYLIC ACID

REACTIONS (2)
  - Dermatitis atopic [Not Recovered/Not Resolved]
  - Drug ineffective [Unknown]
